FAERS Safety Report 8015958-1 (Version None)
Quarter: 2011Q4

REPORT INFORMATION
  Report Type: 
  Country: None (occurrence: None)
  Receive Date: 20111230
  Receipt Date: 20111219
  Transmission Date: 20120403
  Serious: Yes (Other)
  Sender: FDA-Public Use
  Company Number: CA-JNJFOC-20111211247

PATIENT
  Sex: Female
  Weight: 54 kg

DRUGS (9)
  1. VIOKASE 16 [Concomitant]
     Route: 065
  2. PANTOPRAZOLE [Concomitant]
     Route: 065
  3. LEVOTHYROXINE SODIUM [Concomitant]
     Route: 065
  4. PREDNISONE [Concomitant]
     Route: 065
  5. RANITIDINE [Concomitant]
     Route: 065
  6. DOXEPIN [Concomitant]
     Route: 065
  7. CITALOPRAM HYDROBROMIDE [Concomitant]
     Route: 065
  8. BUSPIRONE [Concomitant]
     Route: 065
  9. REMICADE [Suspect]
     Indication: CROHN'S DISEASE
     Dosage: HAD 27 INFUSIONS
     Route: 042

REACTIONS (5)
  - ADHESION [None]
  - ABDOMINAL DISTENSION [None]
  - MALAISE [None]
  - ABDOMINAL PAIN [None]
  - WEIGHT DECREASED [None]
